FAERS Safety Report 9156937 (Version 2)
Quarter: 2013Q1

REPORT INFORMATION
  Report Type: Report from Study
  Country: DE (occurrence: DE)
  Receive Date: 20130312
  Receipt Date: 20130329
  Transmission Date: 20140127
  Serious: Yes (Death, Hospitalization)
  Sender: FDA-Public Use
  Company Number: PHHY2013DE023638

PATIENT
  Age: 78 Year
  Sex: Male
  Weight: 72 kg

DRUGS (1)
  1. EXELON [Suspect]
     Indication: DEMENTIA ALZHEIMER^S TYPE
     Dosage: 4.6 MG/24 HOURS
     Route: 062
     Dates: start: 20121004

REACTIONS (3)
  - Pneumonia aspiration [Fatal]
  - Fall [Fatal]
  - Hip fracture [Unknown]
